FAERS Safety Report 10465019 (Version 1)
Quarter: 2014Q3

REPORT INFORMATION
  Report Type: Spontaneous
  Country: RO (occurrence: RO)
  Receive Date: 20140919
  Receipt Date: 20140919
  Transmission Date: 20150326
  Serious: Yes (Other)
  Sender: FDA-Public Use
  Company Number: RO-VIIV HEALTHCARE LIMITED-B1034933A

PATIENT
  Age: 53 Year
  Sex: Male

DRUGS (6)
  1. COMBIVIR [Suspect]
     Active Substance: LAMIVUDINE\ZIDOVUDINE
     Indication: HIV INFECTION
     Route: 065
  2. RIBAVIRIN. [Suspect]
     Active Substance: RIBAVIRIN
     Indication: HIV INFECTION
  3. ZIDOVUDINE. [Suspect]
     Active Substance: ZIDOVUDINE
     Indication: HIV INFECTION
  4. ATAZANAVIR [Suspect]
     Active Substance: ATAZANAVIR
     Indication: HIV INFECTION
  5. RITONAVIR [Suspect]
     Active Substance: RITONAVIR
     Indication: HIV INFECTION
  6. PEGINTERFERON ALFA-2B [Suspect]
     Active Substance: PEGINTERFERON ALFA-2B
     Indication: PRODUCT USED FOR UNKNOWN INDICATION

REACTIONS (7)
  - Jaundice [Unknown]
  - Alanine aminotransferase increased [Unknown]
  - Lipodystrophy acquired [Unknown]
  - Drug ineffective [Unknown]
  - Blood bilirubin [Unknown]
  - Drug interaction [Unknown]
  - Red blood cell count decreased [Unknown]
